FAERS Safety Report 21140541 (Version 1)
Quarter: 2022Q3

REPORT INFORMATION
  Report Type: Spontaneous
  Country: FR (occurrence: FR)
  Receive Date: 20220728
  Receipt Date: 20220728
  Transmission Date: 20221026
  Serious: Yes (Hospitalization)
  Sender: FDA-Public Use
  Company Number: None

PATIENT
  Age: 50 Year
  Sex: Male
  Weight: 73 kg

DRUGS (2)
  1. FUROSEMIDE [Suspect]
     Active Substance: FUROSEMIDE
     Indication: Polyuria
     Dates: start: 20220419, end: 20220423
  2. ARTESUNATE [Concomitant]
     Active Substance: ARTESUNATE
     Indication: Malaria
     Dosage: STRENGTH 60 MG
     Dates: start: 20220420

REACTIONS (1)
  - Renal failure [Recovering/Resolving]

NARRATIVE: CASE EVENT DATE: 20220421
